FAERS Safety Report 14288995 (Version 2)
Quarter: 2018Q1

REPORT INFORMATION
  Report Type: Report from Study
  Country: US (occurrence: US)
  Receive Date: 20171215
  Receipt Date: 20180110
  Transmission Date: 20180509
  Serious: Yes (Hospitalization, Other)
  Sender: FDA-Public Use
  Company Number: US-BAUSCH-BL-2017-034433

PATIENT
  Age: 55 Year
  Sex: Male
  Weight: 84.44 kg

DRUGS (1)
  1. XIFAXAN [Suspect]
     Active Substance: RIFAXIMIN
     Indication: HEPATIC CIRRHOSIS
     Dosage: 2 YEARS AGO
     Route: 065
     Dates: start: 2016

REACTIONS (4)
  - Pleural effusion [Recovering/Resolving]
  - Disease complication [Recovering/Resolving]
  - Memory impairment [Recovered/Resolved]
  - Cough [Recovering/Resolving]

NARRATIVE: CASE EVENT DATE: 201711
